FAERS Safety Report 9788588 (Version 1)
Quarter: 2013Q4

REPORT INFORMATION
  Report Type: Spontaneous
  Country: US (occurrence: US)
  Receive Date: 20131230
  Receipt Date: 20131230
  Transmission Date: 20140711
  Serious: Yes (Other)
  Sender: FDA-Public Use
  Company Number: US-PFIZER INC-2013372650

PATIENT
  Age: 37 Year
  Sex: Female
  Weight: 54.42 kg

DRUGS (2)
  1. EFFEXOR XR [Suspect]
     Indication: DEPRESSION
     Dosage: 150 MG, 2X/DAY
  2. LATUDA [Concomitant]
     Indication: DEPRESSION
     Dosage: 60 MG, 1X/DAY

REACTIONS (4)
  - Dependence [Unknown]
  - Dizziness [Unknown]
  - Malaise [Unknown]
  - Drug dose omission [Unknown]
